FAERS Safety Report 24554201 (Version 4)
Quarter: 2024Q4

REPORT INFORMATION
  Report Type: Report from Study
  Country: CH (occurrence: CH)
  Receive Date: 20241028
  Receipt Date: 20241128
  Transmission Date: 20250114
  Serious: Yes (Hospitalization)
  Sender: ABBVIE
  Company Number: CH-ABBVIE-5977482

PATIENT
  Age: 76 Year
  Sex: Male

DRUGS (4)
  1. CARBIDOPA\LEVODOPA [Suspect]
     Active Substance: CARBIDOPA\LEVODOPA
     Indication: Parkinson^s disease
     Dosage: MD: 7.0 ML, CRD: 3.3 ML/H, ED: 1.5 ML?FREQUENCY TEXT: 16H THERAPY
     Route: 050
     Dates: start: 20240904, end: 202410
  2. CARBIDOPA\LEVODOPA [Suspect]
     Active Substance: CARBIDOPA\LEVODOPA
     Dosage: END DATE: 2024
     Route: 050
     Dates: start: 20240206
  3. CARBIDOPA\LEVODOPA [Suspect]
     Active Substance: CARBIDOPA\LEVODOPA
     Dosage: MD: 7.0 ML, CRD: 3.5 ML/H, ED: 1.5 ML?FREQUENCY TEXT: 16H THERAPY
     Route: 050
     Dates: start: 202410, end: 20241029
  4. CARBIDOPA\LEVODOPA [Suspect]
     Active Substance: CARBIDOPA\LEVODOPA
     Dosage: MD: 7.0 ML, CRD: 3.3 ML/H, ED: 1.5 ML?FREQUENCY TEXT: 16H THERAPY
     Route: 050
     Dates: start: 20241029

REACTIONS (4)
  - Coronavirus infection [Unknown]
  - Dyskinesia [Not Recovered/Not Resolved]
  - Weight decreased [Unknown]
  - Freezing phenomenon [Not Recovered/Not Resolved]

NARRATIVE: CASE EVENT DATE: 20241001
